FAERS Safety Report 7659749-X (Version None)
Quarter: 2011Q3

REPORT INFORMATION
  Report Type: 
  Country: None (occurrence: None)
  Receive Date: 20110805
  Receipt Date: 20110729
  Transmission Date: 20111222
  Serious: Yes (Other)
  Sender: FDA-Public Use
  Company Number: PHHY2011ES70092

PATIENT
  Age: 50 Year
  Sex: Male

DRUGS (4)
  1. DOXORUBICIN HCL [Suspect]
  2. VINCRISTINE [Suspect]
  3. PREDNISONE [Suspect]
  4. ASPARAGINASE [Suspect]

REACTIONS (4)
  - ERYTHEMA [None]
  - DERMATITIS [None]
  - METAPLASIA [None]
  - SKIN EROSION [None]
